FAERS Safety Report 5572778-5 (Version None)
Quarter: 2007Q4

REPORT INFORMATION
  Report Type: 
  Country: None (occurrence: None)
  Receive Date: 20071223
  Receipt Date: 20071214
  Transmission Date: 20080405
  Serious: Yes (Other)
  Sender: FDA-Public Use
  Company Number: PHBS2007JP21067

PATIENT
  Age: 14 Year

DRUGS (1)
  1. RITALIN [Suspect]
     Dosage: 320 MG, ONCE/SINGLE
     Route: 048
     Dates: start: 20071213, end: 20071213

REACTIONS (5)
  - BODY TEMPERATURE INCREASED [None]
  - HEADACHE [None]
  - INTENTIONAL OVERDOSE [None]
  - TACHYCARDIA [None]
  - THIRST [None]
